FAERS Safety Report 8287006-X (Version None)
Quarter: 2012Q2

REPORT INFORMATION
  Report Type: 
  Country: None (occurrence: None)
  Receive Date: 20120413
  Receipt Date: 20120406
  Transmission Date: 20120825
  Serious: Yes (Other)
  Sender: FDA-Public Use
  Company Number: IT-MERCK-1204USA00887

PATIENT
  Age: 34 Year
  Sex: Female

DRUGS (1)
  1. SINGULAIR [Suspect]
     Route: 048
     Dates: end: 20120301

REACTIONS (1)
  - ALLERGIC GRANULOMATOUS ANGIITIS [None]
